FAERS Safety Report 23248088 (Version 4)
Quarter: 2025Q2

REPORT INFORMATION
  Report Type: Spontaneous
  Country: US (occurrence: US)
  Receive Date: 20231130
  Receipt Date: 20250630
  Transmission Date: 20250717
  Serious: No
  Sender: BIOMARIN
  Company Number: US-SA-SAC20231116001219

PATIENT
  Age: 36 Year
  Sex: Female

DRUGS (2)
  1. LARONIDASE [Suspect]
     Active Substance: LARONIDASE
     Indication: Mucopolysaccharidosis I
     Dosage: 60.9 (UNITS NOT PROVIDED), QW
     Dates: start: 20050214
  2. LARONIDASE [Suspect]
     Active Substance: LARONIDASE
     Dosage: 58 MG, QW

REACTIONS (5)
  - Depression [Unknown]
  - Pain [Unknown]
  - Malaise [Recovering/Resolving]
  - Back injury [Unknown]
  - COVID-19 [Recovering/Resolving]

NARRATIVE: CASE EVENT DATE: 20250611
